FAERS Safety Report 9349225 (Version 1)
Quarter: 2013Q2

REPORT INFORMATION
  Report Type: Spontaneous
  Country: US (occurrence: US)
  Receive Date: 20130614
  Receipt Date: 20130614
  Transmission Date: 20140414
  Serious: Yes (Other)
  Sender: FDA-Public Use
  Company Number: US-INCYTE CORPORATION-2013IN001227

PATIENT
  Age: 60 Year
  Sex: Male

DRUGS (2)
  1. JAKAFI [Suspect]
     Indication: MYELOFIBROSIS
     Dosage: 15 MG, BID
     Route: 048
     Dates: end: 2013
  2. JAKAFI [Suspect]
     Dosage: 10 MG, BID
     Route: 048
     Dates: start: 2013

REACTIONS (3)
  - Malignant melanoma [Recovered/Resolved]
  - Procedural haemorrhage [Recovered/Resolved]
  - Blood count abnormal [Recovered/Resolved]
